FAERS Safety Report 21503035 (Version 1)
Quarter: 2022Q4

REPORT INFORMATION
  Report Type: Spontaneous
  Country: US (occurrence: None)
  Receive Date: 20221024
  Receipt Date: 20221024
  Transmission Date: 20230113
  Serious: No
  Sender: FDA-Public Use
  Company Number: None

PATIENT
  Sex: 0

DRUGS (1)
  1. REPATHA [Suspect]
     Active Substance: EVOLOCUMAB
     Indication: Blood cholesterol increased
     Dates: start: 20220913, end: 20221011

REACTIONS (12)
  - Heart rate increased [None]
  - Pruritus [None]
  - Urticaria [None]
  - Injection site bruising [None]
  - Blood pressure increased [None]
  - Blood glucose increased [None]
  - Asthma [None]
  - Back pain [None]
  - Sinusitis [None]
  - Heart rate increased [None]
  - Feeling abnormal [None]
  - Hypersensitivity [None]

NARRATIVE: CASE EVENT DATE: 20221011
